FAERS Safety Report 21259991 (Version 1)
Quarter: 2022Q3

REPORT INFORMATION
  Report Type: Spontaneous
  Country: GB (occurrence: GB)
  Receive Date: 20220826
  Receipt Date: 20220826
  Transmission Date: 20221027
  Serious: Yes (Hospitalization)
  Sender: FDA-Public Use
  Company Number: GB-MYLANLABS-2022M1018855

PATIENT
  Age: 74 Year
  Sex: Male
  Weight: 83.6 kg

DRUGS (2)
  1. CLOZARIL [Suspect]
     Active Substance: CLOZAPINE
     Indication: Parkinson^s disease
     Dosage: 37.5 MILLIGRAM, HS
     Route: 048
     Dates: start: 20191113
  2. CLOZARIL [Suspect]
     Active Substance: CLOZAPINE
     Indication: Dementia

REACTIONS (6)
  - Lower respiratory tract infection [Unknown]
  - Pneumonia [Unknown]
  - Neutrophilia [Unknown]
  - Leukocytosis [Unknown]
  - Urinary tract infection [Unknown]
  - Infection [Unknown]

NARRATIVE: CASE EVENT DATE: 20220308
